FAERS Safety Report 12422558 (Version 1)
Quarter: 2016Q2

REPORT INFORMATION
  Report Type: Spontaneous
  Country: KR (occurrence: KR)
  Receive Date: 20160601
  Receipt Date: 20160601
  Transmission Date: 20160815
  Serious: Yes (Other)
  Sender: FDA-Public Use
  Company Number: KR-BAXTER-2016BAX028133

PATIENT
  Age: 10 Year
  Sex: Female

DRUGS (4)
  1. DOXORUBICIN [Suspect]
     Active Substance: DOXORUBICIN
     Indication: GLOMUS TUMOUR
     Dosage: CONTINUOUS INFUSION ON DAYS 0, 1, 2
     Route: 042
  2. DOXORUBICIN [Suspect]
     Active Substance: DOXORUBICIN
     Indication: METASTASES TO LUNG
     Route: 042
  3. HOLOXAN 1000MG INJ (IFOSFAMIDE) [Suspect]
     Active Substance: IFOSFAMIDE
     Indication: GLOMUS TUMOUR
     Dosage: 1.7 G/M2/DAY ON DAYS 0, 1, 2, 3
     Route: 042
  4. HOLOXAN 1000MG INJ (IFOSFAMIDE) [Suspect]
     Active Substance: IFOSFAMIDE
     Indication: METASTASES TO LUNG
     Dosage: DURING 2 MONTHS
     Route: 042

REACTIONS (2)
  - Bone marrow failure [Unknown]
  - Drug ineffective [Unknown]
